FAERS Safety Report 14506357 (Version 1)
Quarter: 2018Q1

REPORT INFORMATION
  Report Type: Other
  Country: LT (occurrence: LT)
  Receive Date: 20180208
  Receipt Date: 20180208
  Transmission Date: 20180509
  Serious: Yes (Hospitalization)
  Sender: FDA-Public Use
  Company Number: LT-GLENMARK PHARMACEUTICALS-2017GMK031607

PATIENT

DRUGS (10)
  1. DICLOFENAC SODIUM. [Suspect]
     Active Substance: DICLOFENAC SODIUM
     Indication: PRODUCT USED FOR UNKNOWN INDICATION
     Dosage: 100 MG, QD
     Route: 054
     Dates: start: 20070814
  2. DEXAMETHASONE. [Suspect]
     Active Substance: DEXAMETHASONE
     Indication: MATERNAL THERAPY TO ENHANCE FOETAL LUNG MATURITY
     Dosage: UNK
     Route: 065
  3. GENTAMYCIN [Suspect]
     Active Substance: GENTAMICIN
     Indication: AMNIOTIC CAVITY INFECTION
     Dosage: UNK
     Route: 065
  4. NITROFURANTOIN. [Suspect]
     Active Substance: NITROFURANTOIN
     Indication: URINARY TRACT INFECTION
     Dosage: 200 MG, BID
     Route: 065
  5. MEROPENEM. [Suspect]
     Active Substance: MEROPENEM
     Indication: PERITONITIS
     Dosage: 3 G, TID
     Route: 065
  6. HEPARIN [Suspect]
     Active Substance: HEPARIN SODIUM
     Indication: THROMBOSIS PROPHYLAXIS
     Dosage: 0.4 ML, QD
     Route: 058
  7. FENTANYL. [Suspect]
     Active Substance: FENTANYL
     Indication: LABOUR PAIN
     Dosage: UNK
     Route: 065
  8. METRONIDAZOLE. [Suspect]
     Active Substance: METRONIDAZOLE
     Indication: AMNIOTIC CAVITY INFECTION
     Dosage: UNK
     Route: 065
  9. CEFAZOLIN [Suspect]
     Active Substance: CEFAZOLIN
     Indication: AMNIOTIC CAVITY INFECTION
     Dosage: UNK
     Route: 065
  10. MAGNESIUM [Suspect]
     Active Substance: MAGNESIUM
     Indication: PRODUCT USED FOR UNKNOWN INDICATION
     Dosage: UNK
     Route: 065

REACTIONS (2)
  - Maternal exposure during pregnancy [Unknown]
  - Premature delivery [Unknown]
